FAERS Safety Report 13040382 (Version 1)
Quarter: 2016Q4

REPORT INFORMATION
  Report Type: Spontaneous
  Country: FR (occurrence: FR)
  Receive Date: 20161219
  Receipt Date: 20161219
  Transmission Date: 20170207
  Serious: Yes (Death, Other)
  Sender: FDA-Public Use
  Company Number: FR-UCBSA-2016048266

PATIENT
  Age: 75 Year
  Sex: Male

DRUGS (13)
  1. KEPPRA [Interacting]
     Active Substance: LEVETIRACETAM
     Dosage: 1500 MG IVD
     Route: 041
     Dates: start: 20161016, end: 20161018
  2. HYPNOVEL [Interacting]
     Active Substance: MIDAZOLAM\MIDAZOLAM HYDROCHLORIDE
     Dosage: INCREASING DOSES OVER THE DAY (5 MG/HR, FOLLOWED BY 7 MG/HR AND THEN 8 MG/HR)
     Dates: start: 20161018, end: 20161018
  3. HYPNOVEL [Interacting]
     Active Substance: MIDAZOLAM\MIDAZOLAM HYDROCHLORIDE
     Dosage: 60 MG/ HOURLY
     Dates: start: 20161024, end: 20161025
  4. CARBAMAZEPINE. [Concomitant]
     Active Substance: CARBAMAZEPINE
     Indication: PRODUCT USED FOR UNKNOWN INDICATION
     Dosage: 1 TABLET/DAY
     Dates: start: 20161016
  5. RIVOTRIL [Interacting]
     Active Substance: CLONAZEPAM
     Dosage: (0.1 MG/HR BY SYRINGE PUMP )
     Route: 042
     Dates: start: 20161016, end: 20161018
  6. KEPPRA [Suspect]
     Active Substance: LEVETIRACETAM
     Indication: PRODUCT USED FOR UNKNOWN INDICATION
     Dosage: UNK
     Route: 040
     Dates: start: 20161013, end: 201610
  7. HYPNOVEL [Interacting]
     Active Substance: MIDAZOLAM\MIDAZOLAM HYDROCHLORIDE
     Indication: PRODUCT USED FOR UNKNOWN INDICATION
     Dosage: 50MG/10ML ((3 MG/HR THEN 5 MG/H BY SYRINGE PUMP)
     Route: 042
     Dates: start: 20161017, end: 20161017
  8. PRODILANTIN [Interacting]
     Active Substance: FOSPHENYTOIN SODIUM
     Indication: PRODUCT USED FOR UNKNOWN INDICATION
     Dosage: 75MG/ML
     Route: 042
     Dates: start: 20161013, end: 20161016
  9. HYPNOVEL [Interacting]
     Active Substance: MIDAZOLAM\MIDAZOLAM HYDROCHLORIDE
     Dosage: 40 MG/ HOURLY
     Dates: start: 20161019, end: 20161023
  10. RIVOTRIL [Interacting]
     Active Substance: CLONAZEPAM
     Indication: PRODUCT USED FOR UNKNOWN INDICATION
     Dosage: 1MG/1ML
     Route: 042
     Dates: start: 20161013, end: 201610
  11. KEPPRA [Interacting]
     Active Substance: LEVETIRACETAM
     Dosage: 750 MG, UNK
     Route: 041
     Dates: start: 20161024, end: 20161025
  12. TEGRETOL [Interacting]
     Active Substance: CARBAMAZEPINE
     Indication: PRODUCT USED FOR UNKNOWN INDICATION
     Dosage: UNK
     Route: 048
     Dates: start: 20161013, end: 20161018
  13. URBANYL [Interacting]
     Active Substance: CLOBAZAM
     Indication: PRODUCT USED FOR UNKNOWN INDICATION
     Dosage: 10 MG, 2X/DAY (BID)
     Route: 048
     Dates: start: 20161017, end: 20161018

REACTIONS (3)
  - Drug interaction [Not Recovered/Not Resolved]
  - Drug ineffective [Unknown]
  - Status epilepticus [Fatal]

NARRATIVE: CASE EVENT DATE: 201610
